FAERS Safety Report 25413637 (Version 1)
Quarter: 2025Q2

REPORT INFORMATION
  Report Type: Spontaneous
  Country: US (occurrence: None)
  Receive Date: 20250607
  Receipt Date: 20250607
  Transmission Date: 20250717
  Serious: No
  Sender: FDA-CTU
  Company Number: None

PATIENT
  Age: 42 Year
  Sex: Female
  Weight: 95.4 kg

DRUGS (1)
  1. METHYLCOBALAMIN\NADIDE\TIRZEPATIDE [Suspect]
     Active Substance: METHYLCOBALAMIN\NADIDE\TIRZEPATIDE
     Indication: Weight decreased
     Dosage: OTHER QUANTITY : .5 ML;?OTHER FREQUENCY : 1XWK;?
     Route: 058
     Dates: start: 20250525, end: 20250601

REACTIONS (3)
  - Vitamin B12 increased [None]
  - Product quality issue [None]
  - Product formulation issue [None]

NARRATIVE: CASE EVENT DATE: 20250525
